FAERS Safety Report 9302494 (Version 3)
Quarter: 2014Q1

REPORT INFORMATION
  Report Type: Spontaneous
  Country: GB (occurrence: None)
  Receive Date: 20130516
  Receipt Date: 20140129
  Transmission Date: 20141002
  Serious: Yes (Death)
  Sender: FDA-Public Use
  Company Number: AUR-APL-2013-03790

PATIENT
  Age: 39 Year
  Sex: Male

DRUGS (2)
  1. CITALOPRAM [Suspect]
     Indication: DEPRESSION
     Route: 048
     Dates: start: 20111128
  2. AMISULPRIDE [Suspect]
     Indication: SCHIZOPHRENIA
     Dates: start: 20111128

REACTIONS (4)
  - Fall [None]
  - Drug interaction [None]
  - Contraindication to medical treatment [None]
  - Antipsychotic drug level above therapeutic [None]
